FAERS Safety Report 24131678 (Version 1)
Quarter: 2024Q3

REPORT INFORMATION
  Report Type: Spontaneous
  Country: US (occurrence: US)
  Receive Date: 20240724
  Receipt Date: 20240724
  Transmission Date: 20241016
  Serious: Yes (Hospitalization, Other)
  Sender: LEADING PHARMA
  Company Number: US-LEADINGPHARMA-US-2024LEALIT00317

PATIENT
  Age: 24 Year
  Sex: Male

DRUGS (1)
  1. GLYCOPYRROLATE [Suspect]
     Active Substance: GLYCOPYRROLATE
     Indication: Hyperhidrosis
     Route: 065

REACTIONS (7)
  - Multiple organ dysfunction syndrome [Recovered/Resolved]
  - Acute kidney injury [Recovered/Resolved]
  - Rhabdomyolysis [Recovered/Resolved]
  - Disseminated intravascular coagulation [Recovered/Resolved]
  - Liver injury [Recovered/Resolved]
  - Heat stroke [Recovered/Resolved]
  - Product use in unapproved indication [Unknown]
